FAERS Safety Report 6925751-6 (Version None)
Quarter: 2010Q3

REPORT INFORMATION
  Report Type: 
  Country: None (occurrence: None)
  Receive Date: 20100816
  Receipt Date: 20100805
  Transmission Date: 20110219
  Serious: Yes (Hospitalization)
  Sender: FDA-Public Use
  Company Number: A0875930A

PATIENT
  Sex: Male

DRUGS (2)
  1. AVANDIA [Suspect]
     Route: 048
     Dates: start: 20030702, end: 20091001
  2. AVANDAMET [Suspect]
     Route: 048
     Dates: start: 20041201

REACTIONS (2)
  - CORONARY ARTERY BYPASS [None]
  - PAIN [None]
